FAERS Safety Report 9098697 (Version 6)
Quarter: 2013Q2

REPORT INFORMATION
  Report Type: Spontaneous
  Country: US (occurrence: US)
  Receive Date: 20130213
  Receipt Date: 20130424
  Transmission Date: 20140414
  Serious: Yes (Other)
  Sender: FDA-Public Use
  Company Number: US-PFIZER INC-2013051964

PATIENT
  Age: 60 Year
  Sex: Male
  Weight: 97.51 kg

DRUGS (13)
  1. GLUCOTROL [Suspect]
     Indication: DIABETES MELLITUS
     Dosage: 5 MG, 2X/DAY
     Route: 048
     Dates: end: 201302
  2. GLUCOTROL [Suspect]
     Dosage: 10 MG, 2X/DAY
     Dates: start: 201302
  3. METFORMIN HCL [Suspect]
     Dosage: 500 MG, 2X/DAY
     Route: 048
     Dates: start: 20130115, end: 20130127
  4. NEURONTIN [Suspect]
     Indication: SCIATICA
     Dosage: 300 MG, 2X/DAY
     Route: 048
     Dates: end: 201302
  5. NEURONTIN [Suspect]
     Indication: INTERVERTEBRAL DISC DEGENERATION
  6. ASPIRIN [Concomitant]
     Dosage: 81 MG, 1X/DAY (DAILY)
  7. NEURONTIN [Concomitant]
     Indication: PAIN
     Dosage: 300 MG, UNK
  8. HYDROCHLOROTHIAZIDE/TRIAMTERENE [Concomitant]
     Indication: SWELLING
     Dosage: 25/37.5 MG, UNK
  9. ATENOLOL [Concomitant]
     Indication: HYPERTENSION
     Dosage: 50 MG, 2X/DAY
  10. XANAX [Concomitant]
     Dosage: 1 MG, 3X/DAY
  11. FLEXERIL [Concomitant]
     Dosage: 10 MG, 3X/DAY
  12. TYLENOL [Concomitant]
     Indication: PAIN
     Dosage: 500 MG, UNK
  13. LORCET PLUS [Concomitant]
     Dosage: UNK, 3X/DAY (650/7.5 MG)

REACTIONS (13)
  - Pneumonia [Unknown]
  - Myocardial infarction [Recovered/Resolved]
  - Blood glucose increased [Unknown]
  - Infection [Unknown]
  - Dyspnoea [Unknown]
  - Weight decreased [Unknown]
  - Malaise [Unknown]
  - Nasopharyngitis [Unknown]
  - Blood glucose fluctuation [Unknown]
  - Feeling abnormal [Unknown]
  - Hyperproteinaemia [Unknown]
  - Blood cholesterol increased [Unknown]
  - Laboratory test abnormal [Unknown]
